FAERS Safety Report 20368725 (Version 1)
Quarter: 2022Q1

REPORT INFORMATION
  Report Type: Spontaneous
  Country: BR (occurrence: BR)
  Receive Date: 20220124
  Receipt Date: 20220124
  Transmission Date: 20220423
  Serious: Yes (Disabling, Other)
  Sender: FDA-Public Use
  Company Number: BR-ABBVIE-22K-020-4244498-00

PATIENT
  Sex: Female

DRUGS (1)
  1. RINVOQ [Suspect]
     Active Substance: UPADACITINIB
     Indication: Product used for unknown indication
     Route: 048

REACTIONS (14)
  - Corneal transplant [Recovering/Resolving]
  - Ulcerative keratitis [Not Recovered/Not Resolved]
  - Suture rupture [Recovering/Resolving]
  - Blood triglycerides abnormal [Unknown]
  - Discomfort [Unknown]
  - Cardiac disorder [Unknown]
  - Eye injury [Not Recovered/Not Resolved]
  - Eye pain [Not Recovered/Not Resolved]
  - Low density lipoprotein abnormal [Unknown]
  - High density lipoprotein abnormal [Unknown]
  - Blood creatinine abnormal [Unknown]
  - Plasma cell disorder [Unknown]
  - Blood cholesterol abnormal [Unknown]
  - Weight increased [Unknown]

NARRATIVE: CASE EVENT DATE: 20210101
